FAERS Safety Report 19020574 (Version 1)
Quarter: 2021Q1

REPORT INFORMATION
  Report Type: Report from Study
  Country: CA (occurrence: CA)
  Receive Date: 20210317
  Receipt Date: 20210317
  Transmission Date: 20210420
  Serious: Yes (Other)
  Sender: FDA-Public Use
  Company Number: CA-TAKEDA-2021TUS012351

PATIENT
  Age: 54 Year
  Sex: Male

DRUGS (2)
  1. LIPIDIL [Concomitant]
     Active Substance: FENOFIBRATE
     Dosage: UNK
  2. VEDOLIZUMAB [Suspect]
     Active Substance: VEDOLIZUMAB
     Indication: CROHN^S DISEASE
     Dosage: 300 MILLIGRAM
     Route: 042
     Dates: start: 20160811

REACTIONS (2)
  - SARS-CoV-1 test positive [Unknown]
  - Pneumonia [Unknown]
